FAERS Safety Report 10065294 (Version 1)
Quarter: 2014Q1

REPORT INFORMATION
  Report Type: Spontaneous
  Country: US (occurrence: None)
  Receive Date: 20140328
  Receipt Date: 20140328
  Transmission Date: 20141002
  Serious: No
  Sender: FDA-Public Use
  Company Number: 1000052676

PATIENT
  Sex: Female

DRUGS (1)
  1. LINZESS [Suspect]
     Dosage: 290 MCG EVERY OTHER DAY ) 290 MCG, EVERY OTHER DAY)

REACTIONS (1)
  - Drug ineffective [None]
